FAERS Safety Report 5893886-5 (Version None)
Quarter: 2008Q3

REPORT INFORMATION
  Report Type: 
  Country: None (occurrence: None)
  Receive Date: 20080923
  Receipt Date: 20071129
  Transmission Date: 20090109
  Serious: No
  Sender: FDA-Public Use
  Company Number: US-ASTRAZENECA-2007UW27351

PATIENT
  Age: 10 Year
  Sex: Female
  Weight: 40.8 kg

DRUGS (2)
  1. SEROQUEL [Suspect]
     Indication: AUTISM
     Route: 048
  2. RISPERDAL [Concomitant]

REACTIONS (2)
  - AGGRESSION [None]
  - BITE [None]
